FAERS Safety Report 7686910-0 (Version None)
Quarter: 2011Q3

REPORT INFORMATION
  Report Type: 
  Country: None (occurrence: None)
  Receive Date: 20110816
  Receipt Date: 20110810
  Transmission Date: 20111222
  Serious: Yes (Other)
  Sender: FDA-Public Use
  Company Number: GB-TEVA-296215ISR

PATIENT
  Sex: Female

DRUGS (2)
  1. FEMARA [Suspect]
     Indication: BREAST CANCER
     Route: 048
     Dates: start: 20100416
  2. ALENDRONIC ACID [Suspect]

REACTIONS (12)
  - IRRITABILITY [None]
  - DIABETES MELLITUS [None]
  - ARTHRALGIA [None]
  - MUSCULOSKELETAL PAIN [None]
  - CARDIAC FAILURE [None]
  - AMNESIA [None]
  - LIVER DISORDER [None]
  - NIGHT SWEATS [None]
  - RENAL DISORDER [None]
  - OEDEMA PERIPHERAL [None]
  - BLEPHARITIS [None]
  - MACULAR DEGENERATION [None]
